FAERS Safety Report 7632782-X (Version None)
Quarter: 2011Q3

REPORT INFORMATION
  Report Type: 
  Country: None (occurrence: None)
  Receive Date: 20110725
  Receipt Date: 20110113
  Transmission Date: 20111222
  Serious: No
  Sender: FDA-Public Use
  Company Number: US-BRISTOL-MYERS SQUIBB COMPANY-15479124

PATIENT
  Age: 67 Year
  Sex: Female

DRUGS (4)
  1. THYROID TAB [Concomitant]
     Dosage: 1 DF = HALF GRAM AND 1 GRAM ALTERNATE.
  2. COUMADIN [Suspect]
     Indication: PULMONARY EMBOLISM
     Dosage: 2 MG
     Route: 048
     Dates: start: 20101105
  3. AMITIZA [Suspect]
  4. NEXIUM [Concomitant]

REACTIONS (1)
  - HYPOAESTHESIA [None]
